FAERS Safety Report 8618799 (Version 2)
Quarter: 2012Q4

REPORT INFORMATION
  Report Type: 
  Country: FR (occurrence: FR)
  Receive Date: 20120618
  Receipt Date: 20120827
  Transmission Date: 20130627
  Serious: Yes (Hospitalization)
  Sender: FDA-Public Use
  Company Number: FR-ELI_LILLY_AND_COMPANY-FR201206002259

PATIENT
  Age: 54 Year
  Sex: Male
  Weight: 79.5 kg

DRUGS (8)
  1. ZYPREXA [Suspect]
     Indication: PSYCHOTIC DISORDER
     Dosage: 10 mg, UNK
     Route: 042
     Dates: start: 20120607, end: 20120607
  2. ZYPREXA VELOTAB [Suspect]
     Indication: PSYCHOTIC DISORDER
     Route: 048
  3. XANAX [Concomitant]
     Indication: PSYCHOTIC DISORDER
     Dosage: 0.5 mg, tid
  4. STAGID [Concomitant]
     Indication: TYPE 2 DIABETES MELLITUS
     Dosage: 700 mg, tid
  5. CRESTON [Concomitant]
     Indication: DYSLIPIDAEMIA
  6. EFFEXOR [Concomitant]
     Indication: PSYCHOTIC DISORDER
     Dosage: 150 mg, each morning
  7. EFFEXOR [Concomitant]
     Dosage: 75 mg, each evening
  8. COVERSYL [Concomitant]
     Indication: HYPERTENSION

REACTIONS (2)
  - Agitation [Unknown]
  - Incorrect route of drug administration [Unknown]
